FAERS Safety Report 6168216-4 (Version None)
Quarter: 2009Q2

REPORT INFORMATION
  Report Type: 
  Country: None (occurrence: None)
  Receive Date: 20090427
  Receipt Date: 20090417
  Transmission Date: 20091009
  Serious: Yes (Hospitalization)
  Sender: FDA-Public Use
  Company Number: PHHO2009RU05020

PATIENT
  Sex: Female
  Weight: 66 kg

DRUGS (4)
  1. BLINDED NO TREATMENT RECEIVED NOMED [Suspect]
     Indication: GLUCOSE TOLERANCE IMPAIRED
     Dosage: CODE NOT BROKEN
     Route: 048
     Dates: start: 20020924
  2. BLINDED PLACEBO PLACEBO [Suspect]
     Indication: GLUCOSE TOLERANCE IMPAIRED
     Dosage: CODE NOT BROKEN
     Route: 048
     Dates: start: 20020924
  3. STARLIX [Suspect]
     Indication: GLUCOSE TOLERANCE IMPAIRED
     Dosage: CODE NOT BROKEN
     Route: 048
     Dates: start: 20020924
  4. VALSARTAN [Suspect]
     Indication: CARDIOVASCULAR DISORDER
     Dosage: CODE NOT BROKEN
     Route: 048
     Dates: start: 20020924

REACTIONS (1)
  - ANGINA PECTORIS [None]
